FAERS Safety Report 9407164 (Version 2)
Quarter: 2013Q3

REPORT INFORMATION
  Report Type: Spontaneous
  Country: JP (occurrence: JP)
  Receive Date: 20130718
  Receipt Date: 20130801
  Transmission Date: 20140515
  Serious: Yes (Other)
  Sender: FDA-Public Use
  Company Number: PHHY2013JP074181

PATIENT
  Sex: Female

DRUGS (9)
  1. RIFAMPICIN [Suspect]
     Indication: LYMPH NODE TUBERCULOSIS
     Dosage: 3 DF, UNK
     Route: 048
     Dates: start: 20130703
  2. RIFAMPICIN [Suspect]
     Dosage: 1 DF, UNK
     Route: 048
  3. RIFAMPICIN [Suspect]
     Dosage: 3 DF, UNK
     Route: 048
  4. ISONIAZID [Suspect]
     Indication: LYMPH NODE TUBERCULOSIS
     Dosage: 3 DF, UNK
     Dates: start: 20130703
  5. ISONIAZID [Suspect]
     Dosage: 1 DF, UNK
  6. ISONIAZID [Suspect]
     Dosage: 3 DF, UNK
  7. ETHAMBUTOL HYDROCHLORIDE [Suspect]
     Indication: LYMPH NODE TUBERCULOSIS
     Dosage: 3 DF, UNK
     Route: 048
     Dates: start: 20130703
  8. ETHAMBUTOL HYDROCHLORIDE [Suspect]
     Dosage: 1 DF, UNK
     Route: 048
  9. ETHAMBUTOL HYDROCHLORIDE [Suspect]
     Dosage: 3 DF, UNK
     Route: 048

REACTIONS (3)
  - Depressed level of consciousness [Recovered/Resolved]
  - Malaise [Unknown]
  - Wrong technique in drug usage process [Unknown]
